FAERS Safety Report 9695444 (Version 14)
Quarter: 2016Q2

REPORT INFORMATION
  Report Type: Report from Study
  Country: CA (occurrence: CA)
  Receive Date: 20131119
  Receipt Date: 20160601
  Transmission Date: 20160815
  Serious: Yes (Hospitalization, Other)
  Sender: FDA-Public Use
  Company Number: PHHY2013CA106840

PATIENT
  Age: 55 Year
  Sex: Female

DRUGS (8)
  1. SANDOSTATIN LAR DEPOT [Suspect]
     Active Substance: OCTREOTIDE ACETATE
     Indication: CARCINOID TUMOUR
     Dosage: 30 MG, QMO
     Route: 030
     Dates: start: 20130822
  2. SANDOSTATIN LAR DEPOT [Suspect]
     Active Substance: OCTREOTIDE ACETATE
     Dosage: 60 MG, QMO
     Route: 030
  3. SANDOSTATIN [Suspect]
     Active Substance: OCTREOTIDE ACETATE
     Indication: CARCINOID TUMOUR
     Dosage: UNK UG, TID (FOR 7 DAYS)
     Route: 058
     Dates: start: 20130813, end: 201308
  4. SANDOSTATIN [Suspect]
     Active Substance: OCTREOTIDE ACETATE
     Dosage: 200 UG, TID
     Route: 058
     Dates: start: 20160301
  5. SANDOSTATIN LAR DEPOT [Suspect]
     Active Substance: OCTREOTIDE ACETATE
     Dosage: 30 MG, EVERY 21 DAYS
     Route: 030
  6. SANDOSTATIN LAR DEPOT [Suspect]
     Active Substance: OCTREOTIDE ACETATE
     Dosage: 60 MG, TIW
     Route: 048
     Dates: start: 201511
  7. SANDOSTATIN LAR DEPOT [Suspect]
     Active Substance: OCTREOTIDE ACETATE
     Dosage: 50 MG, QMO
     Route: 030
  8. SANDOSTATIN LAR DEPOT [Suspect]
     Active Substance: OCTREOTIDE ACETATE
     Dosage: 50 MG, TIW (EVERY 3 WEEKS)
     Route: 030

REACTIONS (22)
  - Diabetes mellitus [Unknown]
  - Metastases to breast [Unknown]
  - Malignant neoplasm progression [Unknown]
  - Fatigue [Unknown]
  - Contusion [Unknown]
  - Nasopharyngitis [Unknown]
  - Injection site pain [Unknown]
  - Renal cancer [Unknown]
  - Erythema [Unknown]
  - Scar [Unknown]
  - Inappropriate schedule of drug administration [Unknown]
  - Vomiting [Unknown]
  - Second primary malignancy [Unknown]
  - Metastases to gastrointestinal tract [Recovering/Resolving]
  - Breast mass [Unknown]
  - Malaise [Unknown]
  - Gait disturbance [Unknown]
  - Injection site erythema [Unknown]
  - Dyspnoea [Unknown]
  - Injection site infection [Unknown]
  - Blood pressure increased [Unknown]
  - Neoplasm [Unknown]

NARRATIVE: CASE EVENT DATE: 20131106
